FAERS Safety Report 23636532 (Version 1)
Quarter: 2024Q1

REPORT INFORMATION
  Report Type: Spontaneous
  Country: US (occurrence: US)
  Receive Date: 20240315
  Receipt Date: 20240315
  Transmission Date: 20240409
  Serious: Yes (Hospitalization, Other)
  Sender: FDA-Public Use
  Company Number: US-SUN PHARMACEUTICAL INDUSTRIES LTD-2024R1-435723

PATIENT
  Age: 81 Year
  Sex: Male

DRUGS (1)
  1. TRIMETHOPRIM [Suspect]
     Active Substance: TRIMETHOPRIM
     Indication: Nocardiosis
     Dosage: UNK
     Route: 065

REACTIONS (8)
  - Drug hypersensitivity [Unknown]
  - Hypotension [Unknown]
  - Tachycardia [Unknown]
  - Condition aggravated [Unknown]
  - Cryptococcal cutaneous infection [Unknown]
  - Meningitis cryptococcal [Unknown]
  - Septic shock [Unknown]
  - Atrial fibrillation [Unknown]
